FAERS Safety Report 20723859 (Version 7)
Quarter: 2022Q2

REPORT INFORMATION
  Report Type: Report from Study
  Country: CH (occurrence: None)
  Receive Date: 20220419
  Receipt Date: 20220620
  Transmission Date: 20220721
  Serious: Yes (Hospitalization)
  Sender: FDA-Public Use
  Company Number: CH-Eisai Medical Research-EC-2022-113061

PATIENT
  Age: 59 Year
  Sex: Male
  Weight: 77.3 kg

DRUGS (24)
  1. LENVATINIB [Suspect]
     Active Substance: LENVATINIB
     Indication: Malignant melanoma
     Route: 048
     Dates: start: 20211126, end: 20220304
  2. LENVATINIB [Suspect]
     Active Substance: LENVATINIB
     Route: 048
     Dates: start: 20220317, end: 20220407
  3. LENVATINIB [Suspect]
     Active Substance: LENVATINIB
     Route: 048
     Dates: start: 20220427
  4. PEMBROLIZUMAB [Suspect]
     Active Substance: PEMBROLIZUMAB
     Indication: Malignant melanoma
     Dosage: QUAVONLIMAB (MK-1308) 25 MG PLUS PEMBROLIZUMAB (MK-3475) 400 MG
     Route: 042
     Dates: start: 20211126, end: 20220113
  5. PEMBROLIZUMAB [Suspect]
     Active Substance: PEMBROLIZUMAB
     Dosage: QUAVONLIMAB (MK-1308) 25 MG PLUS PEMBROLIZUMAB (MK-3475) 400 MG
     Route: 042
     Dates: start: 20220317, end: 20220317
  6. PEMBROLIZUMAB [Suspect]
     Active Substance: PEMBROLIZUMAB
     Dosage: QUAVONLIMAB (MK-1308) 25 MG PLUS PEMBROLIZUMAB (MK-3475) 400 MG
     Route: 042
     Dates: start: 20220509
  7. OMEGA-3-ACID ETHYL ESTERS [Concomitant]
     Active Substance: OMEGA-3-ACID ETHYL ESTERS
     Dates: start: 2016
  8. OPTIDERM [POLIDOCANOL;UREA] [Concomitant]
     Dates: start: 20220120
  9. XYZAL [Concomitant]
     Active Substance: LEVOCETIRIZINE DIHYDROCHLORIDE
     Dates: start: 20220127
  10. EDARBI [Concomitant]
     Active Substance: AZILSARTAN KAMEDOXOMIL
     Dates: start: 20220303
  11. EDARBI [Concomitant]
     Active Substance: AZILSARTAN KAMEDOXOMIL
     Dates: start: 20220303
  12. CLOBETASOL [Concomitant]
     Active Substance: CLOBETASOL
     Route: 061
     Dates: start: 20220317, end: 20220403
  13. PREDNISONE [Concomitant]
     Active Substance: PREDNISONE
     Dates: start: 20220310, end: 20220328
  14. PREDNISONE [Concomitant]
     Active Substance: PREDNISONE
     Dates: start: 20220329, end: 20220404
  15. PREDNISONE [Concomitant]
     Active Substance: PREDNISONE
     Dates: start: 20220405, end: 20220411
  16. EZETIMIBE [Concomitant]
     Active Substance: EZETIMIBE
     Dates: start: 2016
  17. ATORVASTATIN [Concomitant]
     Active Substance: ATORVASTATIN
     Dates: start: 2016
  18. PANTOPRAZOLE [Concomitant]
     Active Substance: PANTOPRAZOLE
     Dates: start: 20211122
  19. DAFALGAN [Concomitant]
     Active Substance: ACETAMINOPHEN
     Dates: start: 20211129
  20. XARELTO [Concomitant]
     Active Substance: RIVAROXABAN
     Dates: start: 20211214
  21. EUTHYROX [Concomitant]
     Active Substance: LEVOTHYROXINE SODIUM
     Dates: start: 20220318
  22. QUAVONLIMAB [Suspect]
     Active Substance: QUAVONLIMAB
  23. QUAVONLIMAB [Suspect]
     Active Substance: QUAVONLIMAB
  24. QUAVONLIMAB [Suspect]
     Active Substance: QUAVONLIMAB

REACTIONS (1)
  - Colitis [Recovered/Resolved]

NARRATIVE: CASE EVENT DATE: 20220408
